FAERS Safety Report 25767409 (Version 1)
Quarter: 2025Q3

REPORT INFORMATION
  Report Type: Spontaneous
  Country: US (occurrence: None)
  Receive Date: 20250904
  Receipt Date: 20250904
  Transmission Date: 20251020
  Serious: Yes (Hospitalization, Disabling)
  Sender: FDA-CTU
  Company Number: None

PATIENT
  Age: 48 Year
  Sex: Female

DRUGS (1)
  1. SERTRALINE [Suspect]
     Active Substance: SERTRALINE HYDROCHLORIDE
     Indication: Depression
     Dosage: OTHER QUANTITY : 1 TABLET(S);?FREQUENCY : DAILY;?
     Route: 048

REACTIONS (15)
  - Withdrawal syndrome [None]
  - Anxiety [None]
  - Akathisia [None]
  - Skin burning sensation [None]
  - Impaired work ability [None]
  - Insomnia [None]
  - Hypophagia [None]
  - Depression [None]
  - Drug ineffective [None]
  - Pain [None]
  - Emotional distress [None]
  - Loss of personal independence in daily activities [None]
  - Loss of employment [None]
  - Overdose [None]
  - Feeling abnormal [None]

NARRATIVE: CASE EVENT DATE: 20220317
